FAERS Safety Report 8986109 (Version 1)
Quarter: 2013Q1

REPORT INFORMATION
  Report Type: Spontaneous
  Country: US (occurrence: None)
  Receive Date: 20121219
  Receipt Date: 20121219
  Transmission Date: 20140127
  Serious: Yes (Other)
  Sender: FDA-Public Use
  Company Number: US-JNJFOC-20121202382

PATIENT
  Sex: Male

DRUGS (1)
  1. COOL MINT LISTERINE ANTISEPTIC [Suspect]
     Indication: PRODUCT USED FOR UNKNOWN INDICATION
     Dosage: 1 DOSE(S), 1 IN 1 TOTAL, ORAL
     Route: 048

REACTIONS (2)
  - Pharyngeal disorder [None]
  - Expired drug administered [None]
